FAERS Safety Report 24783838 (Version 2)
Quarter: 2025Q3

REPORT INFORMATION
  Report Type: Report from Study
  Country: US (occurrence: US)
  Receive Date: 20241227
  Receipt Date: 20250803
  Transmission Date: 20251021
  Serious: Yes (Other)
  Sender: ALEXION PHARMACEUTICALS
  Company Number: US-AstraZeneca-CH-00774007A

PATIENT
  Sex: Male
  Weight: 83.9 kg

DRUGS (1)
  1. ACALABRUTINIB [Suspect]
     Active Substance: ACALABRUTINIB
     Indication: Chronic lymphocytic leukaemia (in remission)
     Dosage: 100 MILLIGRAM, QD
     Dates: start: 20240915

REACTIONS (3)
  - Urinary retention [Unknown]
  - Swelling [Unknown]
  - Dysuria [Unknown]
